FAERS Safety Report 17342536 (Version 1)
Quarter: 2020Q1

REPORT INFORMATION
  Report Type: Spontaneous
  Country: US (occurrence: US)
  Receive Date: 20200129
  Receipt Date: 20200129
  Transmission Date: 20200409
  Serious: No
  Sender: FDA-Public Use
  Company Number: US-ALLERGAN-1926538US

PATIENT
  Sex: Male

DRUGS (3)
  1. BOTOX [Suspect]
     Active Substance: ONABOTULINUMTOXINA
     Indication: MUSCLE SPASMS
  2. BOTOX [Suspect]
     Active Substance: ONABOTULINUMTOXINA
     Indication: INTERVERTEBRAL DISC PROTRUSION
     Dosage: 400 UNITS, SINGLE
     Route: 065
     Dates: start: 20190108, end: 20190108
  3. BOTOX [Suspect]
     Active Substance: ONABOTULINUMTOXINA
     Indication: BACK PAIN
     Dosage: 400 UNITS, SINGLE
     Route: 065
     Dates: start: 20190409, end: 20190409

REACTIONS (3)
  - Drug ineffective [Unknown]
  - Off label use [Unknown]
  - Drug ineffective for unapproved indication [Unknown]
